FAERS Safety Report 11574726 (Version 2)
Quarter: 2015Q4

REPORT INFORMATION
  Report Type: Spontaneous
  Country: US (occurrence: US)
  Receive Date: 20150916
  Receipt Date: 20151027
  Transmission Date: 20160304
  Serious: No
  Sender: FDA-Public Use
  Company Number: US-ELI_LILLY_AND_COMPANY-US200911002525

PATIENT
  Age: 88 Year
  Sex: Female

DRUGS (1)
  1. FORTEO [Suspect]
     Active Substance: TERIPARATIDE
     Indication: BONE DISORDER
     Dosage: 20 UG, DAILY (1/D)
     Route: 058
     Dates: start: 2009

REACTIONS (8)
  - Hypertension [Unknown]
  - Constipation [Unknown]
  - Gait disturbance [Unknown]
  - Contusion [Unknown]
  - Heart rate increased [Unknown]
  - Dizziness [Unknown]
  - Ligament injury [Unknown]
  - Fall [Recovered/Resolved]

NARRATIVE: CASE EVENT DATE: 20101005
